FAERS Safety Report 4829372-0 (Version None)
Quarter: 2005Q4

REPORT INFORMATION
  Report Type: 
  Country: None (occurrence: None)
  Receive Date: 20051028
  Receipt Date: 20050815
  Transmission Date: 20060501
  Serious: No
  Sender: FDA-Public Use
  Company Number: COT_0184_2005

PATIENT
  Age: 56 Year
  Weight: 66.6788 kg

DRUGS (12)
  1. VENTAVIS [Suspect]
     Indication: PULMONARY HYPERTENSION
  2. VYTORIN [Concomitant]
  3. HUMULIN [Concomitant]
  4. HUMULIN N [Concomitant]
  5. ATENOLOL [Concomitant]
  6. ALTACE [Concomitant]
  7. PROTONIX [Concomitant]
  8. SPIRONOLACTONE [Concomitant]
  9. ACTOS [Concomitant]
  10. PLAQUENIL [Concomitant]
  11. MULTI-VITAMINS [Concomitant]
  12. VITAMIN E [Concomitant]

REACTIONS (2)
  - ORAL DISCOMFORT [None]
  - THROAT IRRITATION [None]
